FAERS Safety Report 25734857 (Version 2)
Quarter: 2025Q4

REPORT INFORMATION
  Report Type: Spontaneous
  Country: EU (occurrence: EU)
  Receive Date: 20250828
  Receipt Date: 20251112
  Transmission Date: 20260118
  Serious: Yes (Hospitalization)
  Sender: AUROBINDO
  Company Number: EU-ROCHE-10000357731

PATIENT
  Age: 69 Year

DRUGS (5)
  1. GEMCITABINE [Suspect]
     Active Substance: GEMCITABINE
     Indication: Neoplasm malignant
     Dosage: UNK
     Route: 065
     Dates: start: 20250304
  2. IRINOTECAN [Suspect]
     Active Substance: IRINOTECAN
     Indication: Neoplasm malignant
     Dosage: DATE OF MOST RECENT DOSE OF CANCER TREATMENTPRIOR TO AE/SAE ONSET 09-JUL-2025 DOSE LAST ADMINISTERED
     Route: 042
     Dates: start: 20250611
  3. FLUOROURACIL [Suspect]
     Active Substance: FLUOROURACIL
     Indication: Neoplasm malignant
     Dosage: DOSE LAST ADMINISTERED PRIOR TO AE/SAE ONSET: 3725 MGDATE OF MOST RECENT DOSE OF CANCER TREATMENT PR
     Route: 042
     Dates: start: 20250611
  4. LEUCOVORIN [Suspect]
     Active Substance: LEUCOVORIN\LEUCOVORIN CALCIUM
     Indication: Neoplasm malignant
     Dosage: DATE OF MOST RECENT DOSE OF CANCER TREATMENTPRIOR TO AE/SAE ONSET 09-JUL-2025 DOSE LAST ADMINISTERED
     Route: 042
     Dates: start: 20250611
  5. PACLITAXEL [Suspect]
     Active Substance: PACLITAXEL
     Indication: Neoplasm malignant
     Dosage: UNK
     Route: 065
     Dates: start: 20250409

REACTIONS (2)
  - General physical health deterioration [Recovered/Resolved]
  - Malaise [Recovering/Resolving]

NARRATIVE: CASE EVENT DATE: 20250721
